FAERS Safety Report 10083604 (Version 3)
Quarter: 2014Q2

REPORT INFORMATION
  Report Type: Spontaneous
  Country: JP (occurrence: JP)
  Receive Date: 20140417
  Receipt Date: 20140529
  Transmission Date: 20141212
  Serious: Yes (Hospitalization)
  Sender: FDA-Public Use
  Company Number: JP-JNJFOC-20140410125

PATIENT
  Age: 76 Year
  Sex: Male
  Weight: 60 kg

DRUGS (8)
  1. SIMPONI [Suspect]
     Indication: RHEUMATOID ARTHRITIS
     Route: 058
     Dates: start: 201311, end: 201403
  2. METHOTREXATE [Suspect]
     Indication: RHEUMATOID ARTHRITIS
     Route: 048
     Dates: end: 20131004
  3. SUNRYTHM [Concomitant]
     Route: 048
     Dates: start: 200806
  4. WARFARIN [Concomitant]
     Route: 048
     Dates: start: 200806
  5. LANIRAPID [Concomitant]
     Route: 048
     Dates: start: 200806
  6. ASPARA (ASPARTATE POTASSIUM, MAGNESIUM ASPARTATE) [Concomitant]
     Route: 048
     Dates: start: 200806
  7. BLOPRESS [Concomitant]
     Route: 048
     Dates: start: 200806
  8. HERBESSER [Concomitant]
     Route: 048
     Dates: start: 20080601

REACTIONS (1)
  - Anaplastic large-cell lymphoma [Recovering/Resolving]
